FAERS Safety Report 5801529-1 (Version None)
Quarter: 2008Q3

REPORT INFORMATION
  Report Type: 
  Country: None (occurrence: None)
  Receive Date: 20080707
  Receipt Date: 20080626
  Transmission Date: 20090109
  Serious: Yes (Hospitalization)
  Sender: FDA-Public Use
  Company Number: US-JNJFOC-20080606849

PATIENT
  Sex: Male
  Weight: 102.51 kg

DRUGS (1)
  1. FENTANYL TRANSDERMAL SYSTEM [Suspect]
     Indication: PAIN
     Dosage: 100UG PATCH + 75UG PATCH
     Route: 062

REACTIONS (2)
  - BACTERIAL INFECTION [None]
  - TINEA PEDIS [None]
